FAERS Safety Report 9632099 (Version 1)
Quarter: 2013Q4

REPORT INFORMATION
  Report Type: Spontaneous
  Country: US (occurrence: None)
  Receive Date: 20131017
  Receipt Date: 20131017
  Transmission Date: 20140711
  Serious: Yes (Other)
  Sender: FDA-Public Use
  Company Number: None

PATIENT
  Age: 70 Year
  Sex: Female
  Weight: 65.32 kg

DRUGS (1)
  1. IMIQUIMOD CREAM, 3.75% ( TOLMAR INC.)- RLD ZYCLARA [Suspect]
     Indication: BASOSQUAMOUS CARCINOMA
     Dosage: APPLY SPARINGLY  AT BEDTIME  APPLIED TO A SURGACE, USUALLY THE SKIN
     Dates: start: 20131009, end: 20131015

REACTIONS (3)
  - Dizziness [None]
  - Abdominal discomfort [None]
  - Nausea [None]
